FAERS Safety Report 21236971 (Version 1)
Quarter: 2022Q3

REPORT INFORMATION
  Report Type: Spontaneous
  Country: US (occurrence: US)
  Receive Date: 20220822
  Receipt Date: 20220822
  Transmission Date: 20221027
  Serious: No
  Sender: FDA-Public Use
  Company Number: US-Accord-263255

PATIENT
  Sex: Female

DRUGS (3)
  1. ANASTROZOLE [Suspect]
     Active Substance: ANASTROZOLE
     Indication: Breast cancer
     Dosage: ONCE DAILY
     Route: 048
     Dates: start: 2019
  2. RIBOCICLIB [Concomitant]
     Active Substance: RIBOCICLIB
     Dosage: DAILY FOR 7 DAYS AND THEN OFF 7 DAYS
     Dates: start: 2019
  3. ASPIRIN [Concomitant]
     Active Substance: ASPIRIN
     Dosage: 1/2 TABLET DAILY
     Route: 048

REACTIONS (3)
  - Alopecia [Not Recovered/Not Resolved]
  - Muscle spasms [Not Recovered/Not Resolved]
  - Arthralgia [Unknown]
